FAERS Safety Report 21789231 (Version 1)
Quarter: 2022Q4

REPORT INFORMATION
  Report Type: Spontaneous
  Country: US (occurrence: None)
  Receive Date: 20221227
  Receipt Date: 20221227
  Transmission Date: 20230113
  Serious: Yes (Other)
  Sender: FDA-Public Use
  Company Number: None

PATIENT
  Age: 76 Year
  Sex: Female

DRUGS (9)
  1. JAKAFI [Suspect]
     Active Substance: RUXOLITINIB
     Dosage: FREQUENCY : TWICE A DAY;?
     Route: 048
     Dates: start: 20221024
  2. HYDROCHLOROTHIAZIDE [Concomitant]
     Active Substance: HYDROCHLOROTHIAZIDE
     Dates: start: 20221021
  3. KLOR-CON [Concomitant]
     Active Substance: POTASSIUM CHLORIDE
     Dates: start: 20221021
  4. XANAX [Concomitant]
     Active Substance: ALPRAZOLAM
     Dates: start: 20221021
  5. UNITHROID [Concomitant]
     Active Substance: LEVOTHYROXINE SODIUM
     Dates: start: 20221021
  6. MINERALS\VITAMINS [Concomitant]
     Active Substance: MINERALS\VITAMINS
     Dates: start: 20221021
  7. VITAMIN B12 [Concomitant]
     Active Substance: CYANOCOBALAMIN
     Dates: start: 20221021
  8. ASPIRIN [Concomitant]
     Active Substance: ASPIRIN
     Dates: start: 20221021
  9. IRON [Concomitant]
     Active Substance: IRON
     Dates: start: 20221021

REACTIONS (3)
  - Nervousness [None]
  - Nausea [None]
  - Asthenia [None]

NARRATIVE: CASE EVENT DATE: 20221227
